FAERS Safety Report 10664130 (Version 1)
Quarter: 2014Q4

REPORT INFORMATION
  Report Type: Spontaneous
  Country: US (occurrence: None)
  Receive Date: 20141208
  Receipt Date: 20141208
  Transmission Date: 20150529
  Serious: No
  Sender: FDA-Public Use
  Company Number: 2014TUS007013

PATIENT
  Age: 61 Year
  Sex: Female
  Weight: 110.2 kg

DRUGS (23)
  1. HUMALOG MIX (INSULIN LISPRO, INSULIN LISPRO PROTAMINE SUSPENSION) [Concomitant]
  2. VITAMIN E /00110501/ (TOCOPHEROL) [Concomitant]
  3. HUMALOG [Concomitant]
     Active Substance: INSULIN LISPRO
  4. INSULIN PORCINE [Concomitant]
     Active Substance: INSULIN DEFALAN (PORCINE)
  5. LEVOTHYROXINE [Concomitant]
     Active Substance: LEVOTHYROXINE
  6. FISH OIL [Concomitant]
     Active Substance: FISH OIL
  7. CO Q10 (UBIDECARENONE) [Concomitant]
  8. VITAMIN D3 [Concomitant]
     Active Substance: CHOLECALCIFEROL
  9. COREG [Concomitant]
     Active Substance: CARVEDILOL
  10. CELEXA /00582602/ (CITALOPRAM HYDROBROMIDE) [Concomitant]
  11. LISINOPRIL. [Concomitant]
     Active Substance: LISINOPRIL
  12. VITAMIN D /00107901/ (ERGOCALCIFEROL) [Concomitant]
  13. NYSTATIN. [Concomitant]
     Active Substance: NYSTATIN
  14. BRINTELLIX [Suspect]
     Active Substance: VORTIOXETINE HYDROBROMIDE
     Indication: PRODUCT USED FOR UNKNOWN INDICATION
  15. JUXTAPID [Suspect]
     Active Substance: LOMITAPIDE MESYLATE
     Indication: TYPE IIA HYPERLIPIDAEMIA
     Dosage: 5 MG, QHS, ORAL
     Route: 048
     Dates: start: 20140123
  16. SEROQUEL [Concomitant]
     Active Substance: QUETIAPINE FUMARATE
  17. METROGEL (METRONIDAZOLE) ??? [Concomitant]
  18. AMLODIPINE BESILATE [Concomitant]
     Active Substance: AMLODIPINE BESYLATE
  19. ASPIRIN (ACETYLSALICYLIC ACID) [Concomitant]
     Active Substance: ASPIRIN
  20. CRESTOR [Concomitant]
     Active Substance: ROSUVASTATIN CALCIUM
  21. LANTUS [Concomitant]
     Active Substance: INSULIN GLARGINE
  22. ZETIA [Concomitant]
     Active Substance: EZETIMIBE
  23. HUMULIN /00646003/ (INSULIN HUMAN ZINC SUSPENSION) [Concomitant]

REACTIONS (4)
  - Diarrhoea [None]
  - Vomiting [None]
  - Nausea [None]
  - Gastrointestinal sounds abnormal [None]

NARRATIVE: CASE EVENT DATE: 20140219
